FAERS Safety Report 7007942-1 (Version None)
Quarter: 2010Q3

REPORT INFORMATION
  Report Type: 
  Country: None (occurrence: None)
  Receive Date: 20100922
  Receipt Date: 20100910
  Transmission Date: 20110219
  Serious: Yes (Other)
  Sender: FDA-Public Use
  Company Number: US-PFIZER INC-2010115409

PATIENT
  Sex: Male

DRUGS (3)
  1. RELPAX [Suspect]
     Indication: MIGRAINE
  2. AXERT [Concomitant]
     Dosage: UNK
  3. MEDROL [Concomitant]
     Dosage: UNK

REACTIONS (2)
  - CLUSTER HEADACHE [None]
  - MIGRAINE [None]
